FAERS Safety Report 10389347 (Version 1)
Quarter: 2014Q3

REPORT INFORMATION
  Report Type: Spontaneous
  Country: IE (occurrence: IE)
  Receive Date: 20140818
  Receipt Date: 20140818
  Transmission Date: 20150326
  Serious: Yes (Hospitalization, Other)
  Sender: FDA-Public Use
  Company Number: IE-UCBSA-2014008278

PATIENT
  Age: 35 Year
  Sex: Female
  Weight: 88 kg

DRUGS (4)
  1. CIMZIA [Suspect]
     Active Substance: CERTOLIZUMAB PEGOL
     Dosage: UNK
     Dates: start: 20140624, end: 2014
  2. HUMIRA [Concomitant]
     Active Substance: ADALIMUMAB
  3. MIRENA [Concomitant]
     Active Substance: LEVONORGESTREL
  4. ARCOXIA [Concomitant]
     Active Substance: ETORICOXIB
     Indication: SPONDYLOARTHROPATHY
     Dosage: 90 MG, UNK
     Route: 048

REACTIONS (6)
  - Ear discomfort [Recovered/Resolved]
  - Tremor [Recovered/Resolved]
  - Palpitations [Recovered/Resolved]
  - Chest discomfort [Unknown]
  - Throat tightness [Recovered/Resolved]
  - Chest pain [Unknown]

NARRATIVE: CASE EVENT DATE: 2014
